FAERS Safety Report 6550679-3 (Version None)
Quarter: 2010Q1

REPORT INFORMATION
  Report Type: 
  Country: None (occurrence: None)
  Receive Date: 20100125
  Receipt Date: 20091222
  Transmission Date: 20100710
  Serious: No
  Sender: FDA-Public Use
  Company Number: US-TYCO HEALTHCARE/MALLINCKRODT-T200902373

PATIENT
  Sex: Male

DRUGS (5)
  1. OPTIRAY 350 [Suspect]
     Indication: COMPUTERISED TOMOGRAM
     Dosage: 50 ML, SINGLE
     Route: 042
     Dates: start: 20090923, end: 20090923
  2. VASERETIC [Concomitant]
     Dosage: 5/12.5 MG
     Route: 048
  3. ALBUTEROL [Concomitant]
     Dosage: 2 PUFFS BID
     Route: 050
  4. ZOCOR [Concomitant]
     Dosage: 20 MG, QD
     Route: 048
  5. PRILOSEC [Concomitant]
     Indication: GASTROOESOPHAGEAL REFLUX DISEASE
     Dosage: 20 MG, QD
     Route: 048

REACTIONS (2)
  - DYSPHONIA [None]
  - SENSATION OF FOREIGN BODY [None]
